FAERS Safety Report 8365821-1 (Version None)
Quarter: 2012Q2

REPORT INFORMATION
  Report Type: 
  Country: None (occurrence: None)
  Receive Date: 20120517
  Receipt Date: 20120509
  Transmission Date: 20120825
  Serious: Yes (Hospitalization)
  Sender: FDA-Public Use
  Company Number: US-BRISTOL-MYERS SQUIBB COMPANY-16491607

PATIENT
  Age: 63 Year
  Sex: Male
  Weight: 149 kg

DRUGS (3)
  1. ERBITUX [Suspect]
     Indication: OESOPHAGEAL ADENOCARCINOMA
     Dosage: COURSE 6, RECENT DOSE 20MAR12 LAST ADMIN DT 03APR12
     Dates: start: 20120227
  2. TAXOL [Suspect]
     Indication: OESOPHAGEAL ADENOCARCINOMA
     Dosage: COURSE 6, RECENT DOSE 20MAR2012 LAST ADMIN DT 03APR12
     Dates: start: 20120227
  3. CISPLATIN [Suspect]
     Indication: OESOPHAGEAL ADENOCARCINOMA
     Dosage: COURSE 6, RECENT DOSE 20MAR12 LAST ADMIN DT 03APR12
     Dates: start: 20120227

REACTIONS (5)
  - HYPOTENSION [None]
  - NAUSEA [None]
  - DIARRHOEA [None]
  - PULMONARY EMBOLISM [None]
  - DEHYDRATION [None]
